FAERS Safety Report 8760959 (Version 2)
Quarter: 2013Q2

REPORT INFORMATION
  Report Type: Report from Study
  Country: DE (occurrence: DE)
  Receive Date: 20120830
  Receipt Date: 20130429
  Transmission Date: 20140414
  Serious: Yes (Hospitalization, Other)
  Sender: FDA-Public Use
  Company Number: DE-ABBOTT-12P-062-0973794-00

PATIENT
  Sex: Male

DRUGS (3)
  1. HUMIRA 40 MG/0.8 ML PEN [Suspect]
     Indication: CROHN^S DISEASE
     Route: 058
     Dates: start: 20100222, end: 20120630
  2. CORTISONE [Concomitant]
     Indication: CROHN^S DISEASE
     Dosage: 5 MG DAILY
  3. MESALAZINE [Concomitant]
     Indication: CROHN^S DISEASE

REACTIONS (2)
  - Intestinal stenosis [Recovered/Resolved]
  - Abscess [Recovered/Resolved]
